FAERS Safety Report 10078297 (Version 2)
Quarter: 2014Q2

REPORT INFORMATION
  Report Type: Spontaneous
  Country: JP (occurrence: JP)
  Receive Date: 20140415
  Receipt Date: 20140624
  Transmission Date: 20141212
  Serious: Yes (Death)
  Sender: FDA-Public Use
  Company Number: JP-ROCHE-1379178

PATIENT
  Age: 55 Year
  Sex: Female
  Weight: 52 kg

DRUGS (10)
  1. AVASTIN [Suspect]
     Indication: BREAST CANCER METASTATIC
     Dosage: LAST DOSE PRIOR TO SERIOUS ADVERE EVENT: 04/MAR/2014?1ST LINE
     Route: 041
     Dates: start: 20131210
  2. DECADRON [Concomitant]
     Indication: BREAST CANCER METASTATIC
     Route: 065
     Dates: start: 20131210, end: 20140218
  3. DECADRON [Concomitant]
     Route: 048
     Dates: start: 20131121, end: 20140313
  4. RANMARK [Concomitant]
     Indication: BREAST CANCER METASTATIC
     Dosage: TWICE
     Route: 058
     Dates: start: 20140106, end: 20140218
  5. TAXOL [Concomitant]
     Indication: BREAST CANCER METASTATIC
     Route: 041
     Dates: start: 20131210, end: 20140218
  6. KYTRIL [Concomitant]
     Indication: PROPHYLAXIS OF NAUSEA AND VOMITING
     Route: 065
     Dates: start: 20131210, end: 20140218
  7. GASTER (JAPAN) [Concomitant]
     Indication: BREAST CANCER METASTATIC
     Route: 065
     Dates: start: 20131210, end: 20140218
  8. POLARAMINE [Concomitant]
     Indication: BREAST CANCER METASTATIC
     Route: 065
     Dates: start: 20131210, end: 20140218
  9. SELBEX [Concomitant]
     Route: 048
     Dates: start: 20131121, end: 20140313
  10. LENDORMIN [Concomitant]
     Route: 048
     Dates: start: 20131121, end: 20140313

REACTIONS (2)
  - Interstitial lung disease [Fatal]
  - Breast cancer metastatic [Fatal]
